FAERS Safety Report 8391341-4 (Version None)
Quarter: 2012Q2

REPORT INFORMATION
  Report Type: 
  Country: None (occurrence: None)
  Receive Date: 20120529
  Receipt Date: 20120521
  Transmission Date: 20120825
  Serious: Yes (Other)
  Sender: FDA-Public Use
  Company Number: US-JNJFOC-20111210683

PATIENT
  Sex: Female

DRUGS (6)
  1. TRAMADOL HCL [Concomitant]
     Indication: SURGERY
     Route: 065
  2. TRAMADOL HCL [Concomitant]
     Indication: ARTHRALGIA
     Route: 065
  3. ANTIBIOTICS NOS [Concomitant]
     Indication: BRONCHITIS
     Route: 065
  4. ANTIBIOTICS NOS [Concomitant]
     Indication: SINUSITIS
     Route: 065
  5. LEVAQUIN [Suspect]
     Indication: SINUSITIS
     Route: 048
  6. BENICAR [Concomitant]
     Indication: HYPERTENSION
     Route: 065

REACTIONS (2)
  - ANKLE IMPINGEMENT [None]
  - TENDON RUPTURE [None]
